FAERS Safety Report 16887227 (Version 1)
Quarter: 2019Q4

REPORT INFORMATION
  Report Type: Report from Study
  Country: US (occurrence: US)
  Receive Date: 20191004
  Receipt Date: 20191004
  Transmission Date: 20200122
  Serious: Yes (Other)
  Sender: FDA-Public Use
  Company Number: US-JNJFOC-20191003437

PATIENT
  Sex: Female

DRUGS (1)
  1. IMBRUVICA [Suspect]
     Active Substance: IBRUTINIB
     Indication: CHRONIC LYMPHOCYTIC LEUKAEMIA
     Dosage: 420 MG, QD
     Route: 048
     Dates: start: 201905

REACTIONS (8)
  - Depression [Not Recovered/Not Resolved]
  - Laboratory test abnormal [Recovering/Resolving]
  - Blood glucose decreased [Not Recovered/Not Resolved]
  - Muscle spasms [Recovering/Resolving]
  - Headache [Not Recovered/Not Resolved]
  - Palpitations [Recovered/Resolved]
  - Blood glucose increased [Not Recovered/Not Resolved]
  - Arthralgia [Not Recovered/Not Resolved]

NARRATIVE: CASE EVENT DATE: 2019
